FAERS Safety Report 17718264 (Version 1)
Quarter: 2020Q2

REPORT INFORMATION
  Report Type: Report from Study
  Country: None (occurrence: BR)
  Receive Date: 20200428
  Receipt Date: 20200428
  Transmission Date: 20200714
  Serious: Yes (Hospitalization, Disabling, Other)
  Sender: FDA-Public Use
  Company Number: BR-ABBVIE-20K-020-3377678-00

PATIENT
  Sex: Female

DRUGS (5)
  1. HUMIRA [Suspect]
     Active Substance: ADALIMUMAB
     Dosage: 1 UNSPECIFIC DOSE
     Route: 058
  2. HUMIRA [Suspect]
     Active Substance: ADALIMUMAB
     Dosage: 1 UNSPECIFIC DOSE
     Route: 058
  3. HUMIRA [Suspect]
     Active Substance: ADALIMUMAB
     Indication: CROHN^S DISEASE
     Dosage: LOADING DOSE - WEEK 0
     Route: 058
     Dates: start: 20150121, end: 20150121
  4. AZATHIOPRINE. [Concomitant]
     Active Substance: AZATHIOPRINE
     Indication: CROHN^S DISEASE
  5. HUMIRA [Suspect]
     Active Substance: ADALIMUMAB
     Dosage: 1 UNSPECIFIC DOSE
     Route: 058

REACTIONS (20)
  - Gangrene [Recovered/Resolved]
  - Subcutaneous abscess [Recovered/Resolved]
  - Thrombosis [Recovered/Resolved]
  - Uveitis [Recovered/Resolved]
  - Malaise [Recovered/Resolved]
  - Malaise [Not Recovered/Not Resolved]
  - Bacterial infection [Recovered/Resolved]
  - Abdominal pain [Not Recovered/Not Resolved]
  - Pyoderma [Recovered/Resolved]
  - Eye pruritus [Recovered/Resolved]
  - Procedural complication [Recovered/Resolved]
  - Post procedural inflammation [Recovered/Resolved]
  - Depression [Recovered/Resolved]
  - Thrombosis [Recovered/Resolved]
  - Arthralgia [Not Recovered/Not Resolved]
  - Mastitis [Recovered/Resolved]
  - Skin injury [Recovered/Resolved]
  - Conjunctivitis [Recovered/Resolved]
  - Necrosis [Recovered/Resolved]
  - Fibromyalgia [Not Recovered/Not Resolved]

NARRATIVE: CASE EVENT DATE: 2017
